FAERS Safety Report 6235660-6 (Version None)
Quarter: 2009Q2

REPORT INFORMATION
  Report Type: 
  Country: None (occurrence: None)
  Receive Date: 20090616
  Receipt Date: 20090603
  Transmission Date: 20091009
  Serious: Yes (Other)
  Sender: FDA-Public Use
  Company Number: 238870J08USA

PATIENT
  Age: 58 Year
  Sex: Female
  Weight: 130 kg

DRUGS (2)
  1. REBIF [Suspect]
     Indication: MULTIPLE SCLEROSIS
     Dosage: 44 MCG, 3 IN 1 WEEKS, SUBCUTANEOUS
     Route: 058
     Dates: start: 20060727
  2. PLAVIX [Concomitant]

REACTIONS (3)
  - ARTHRITIS [None]
  - MENISCUS LESION [None]
  - MULTIPLE SCLEROSIS RELAPSE [None]
